FAERS Safety Report 13268255 (Version 5)
Quarter: 2017Q2

REPORT INFORMATION
  Report Type: Spontaneous
  Country: TW (occurrence: TW)
  Receive Date: 20170224
  Receipt Date: 20170419
  Transmission Date: 20170830
  Serious: Yes (Hospitalization, Other)
  Sender: FDA-Public Use
  Company Number: TW-PFIZER INC-2017068519

PATIENT
  Age: 33 Year
  Sex: Female

DRUGS (8)
  1. ASPIRIN /00002701/ [Concomitant]
     Active Substance: ASPIRIN
     Dosage: 100 MG, QD
     Route: 048
     Dates: end: 20170209
  2. FOLIC ACID. [Concomitant]
     Active Substance: FOLIC ACID
     Dosage: 5 MG, QOD
     Route: 048
  3. ETOLAC /00613801/ [Concomitant]
     Dosage: 500 MG, 1X/DAY
     Route: 048
  4. GOWELL [Concomitant]
     Dosage: 1 DF, BID
     Route: 048
  5. XELJANZ [Suspect]
     Active Substance: TOFACITINIB CITRATE
     Indication: RHEUMATOID ARTHRITIS
     Dosage: 5 MG, BID
     Route: 048
     Dates: start: 20151211, end: 20170208
  6. PREDNISOLONE. [Concomitant]
     Active Substance: PREDNISOLONE
     Dosage: 5 MG, BID
     Route: 048
  7. METHOTREXATE (METHOTREXATE SODIUM) [Concomitant]
     Active Substance: METHOTREXATE SODIUM
     Dosage: 7.5 MG, QW
  8. ULIDEN [Concomitant]
     Dosage: 1 DF, BID

REACTIONS (3)
  - Disease progression [Recovering/Resolving]
  - Osteonecrosis [Recovering/Resolving]
  - Rheumatoid arthritis [Recovering/Resolving]
